FAERS Safety Report 5324803-4 (Version None)
Quarter: 2007Q2

REPORT INFORMATION
  Report Type: 
  Country: None (occurrence: None)
  Receive Date: 20070515
  Receipt Date: 20070510
  Transmission Date: 20071010
  Serious: Yes (Death, Hospitalization)
  Sender: FDA-Public Use
  Company Number: PHBS2007JP06511

PATIENT
  Age: 84 Year
  Sex: Male
  Weight: 52 kg

DRUGS (19)
  1. NEORAL [Suspect]
     Indication: GLOMERULONEPHRITIS MEMBRANOUS
     Dosage: 100 MG/D
     Route: 048
     Dates: start: 20070217, end: 20070222
  2. NEORAL [Suspect]
     Dosage: 75 MG/D
     Route: 048
     Dates: start: 20070223, end: 20070312
  3. BREDININ [Concomitant]
     Indication: GLOMERULONEPHRITIS MEMBRANOUS
     Dosage: 150 MG/D
     Route: 048
     Dates: start: 20070319, end: 20070402
  4. CONIEL [Concomitant]
     Dosage: 4 MG/D
     Route: 048
     Dates: start: 20070116, end: 20070202
  5. ATELEC [Concomitant]
     Dosage: 20 MG/D
     Route: 048
     Dates: start: 20070127, end: 20070210
  6. ADALAT [Concomitant]
     Dosage: 40 MG/D
     Route: 048
     Dates: start: 20070214, end: 20070402
  7. FIRSTCIN [Concomitant]
     Dosage: 1 G/D
     Route: 042
     Dates: start: 20070315, end: 20070318
  8. BAKTAR [Concomitant]
     Dosage: 6 DF/D
     Route: 048
     Dates: start: 20070320, end: 20070402
  9. ASPIRIN [Concomitant]
     Dosage: 100 MG/D
     Route: 048
     Dates: start: 20070127, end: 20070402
  10. PERSANTIN [Concomitant]
     Dosage: 150 MG, BID
     Route: 048
     Dates: start: 20070127, end: 20070402
  11. PREDONINE [Concomitant]
     Indication: GLOMERULONEPHRITIS MEMBRANOUS
     Dosage: 30 MG/D
     Route: 048
     Dates: start: 20070127
  12. PREDONINE [Concomitant]
     Dosage: 20 MG/D
     Route: 048
  13. PREDONINE [Concomitant]
     Dosage: 15 MG/D
     Route: 048
  14. PREDONINE [Concomitant]
     Dosage: 10 MG/D
     Route: 048
     Dates: end: 20070402
  15. SELBEX [Concomitant]
     Dosage: 9 DF/D
     Route: 048
     Dates: start: 20070127, end: 20070402
  16. WARFARIN SODIUM [Concomitant]
     Dosage: 1 DF/D
     Route: 048
     Dates: start: 20070204, end: 20070330
  17. LIPOVAS [Concomitant]
     Dosage: 2 DF/D
     Route: 048
     Dates: start: 20070302, end: 20070402
  18. FUNGIZONE [Concomitant]
     Dosage: 200 MG/D
     Route: 048
     Dates: start: 20070307, end: 20070402
  19. AVELOX [Concomitant]
     Dosage: 1 DF/D
     Route: 048
     Dates: start: 20070308, end: 20070312

REACTIONS (21)
  - ABNORMAL BEHAVIOUR [None]
  - AMNESIA [None]
  - ANAEMIA [None]
  - DECREASED APPETITE [None]
  - DEHYDRATION [None]
  - DEMENTIA [None]
  - DEPRESSED LEVEL OF CONSCIOUSNESS [None]
  - HAEMATEMESIS [None]
  - HAEMATOCRIT DECREASED [None]
  - HAEMOGLOBIN DECREASED [None]
  - INDIFFERENCE [None]
  - LISTLESS [None]
  - MALNUTRITION [None]
  - MELAENA [None]
  - OLIGODIPSIA [None]
  - PEPTIC ULCER HAEMORRHAGE [None]
  - PEPTIC ULCER REACTIVATED [None]
  - RED BLOOD CELL COUNT DECREASED [None]
  - RESTLESSNESS [None]
  - SHOCK [None]
  - TREMOR [None]
